FAERS Safety Report 22073048 (Version 1)
Quarter: 2023Q1

REPORT INFORMATION
  Report Type: Spontaneous
  Country: US (occurrence: US)
  Receive Date: 20230308
  Receipt Date: 20230308
  Transmission Date: 20230417
  Serious: Yes (Hospitalization)
  Sender: FDA-Public Use
  Company Number: US-AUROBINDO-AUR-APL-2023-010495

PATIENT
  Age: 60 Year
  Sex: Male

DRUGS (1)
  1. BELEODAQ [Suspect]
     Active Substance: BELINOSTAT
     Indication: Product used for unknown indication
     Dosage: UNK(1 CYCLE)
     Route: 065

REACTIONS (3)
  - Condition aggravated [Unknown]
  - Renal disorder [Unknown]
  - Endotracheal intubation [Unknown]
